FAERS Safety Report 8216188-0 (Version None)
Quarter: 2012Q1

REPORT INFORMATION
  Report Type: 
  Country: None (occurrence: None)
  Receive Date: 20120316
  Receipt Date: 20120309
  Transmission Date: 20120608
  Serious: Yes (Other)
  Sender: FDA-Public Use
  Company Number: BR-GLAXOSMITHKLINE-A0969873A

PATIENT
  Sex: Female
  Weight: 84 kg

DRUGS (11)
  1. DIOVAN [Concomitant]
  2. GLYBURIDE [Concomitant]
  3. FACTIVE [Concomitant]
  4. CLOPIDOGREL [Concomitant]
  5. METFORMIN HCL [Concomitant]
  6. FLUTICASONE PROPIONATE/SALMETEROL [Suspect]
     Indication: ASTHMA
     Dosage: 2PUFF PER DAY
     Route: 055
     Dates: start: 20080101
  7. AMLODIPINE [Concomitant]
  8. CLINDAL AZ [Concomitant]
  9. PRELONE [Concomitant]
  10. ASPIRIN [Concomitant]
  11. BUDESONIDE [Concomitant]

REACTIONS (6)
  - COUGH [None]
  - PRODUCT QUALITY ISSUE [None]
  - RALES [None]
  - ASTHMATIC CRISIS [None]
  - SNEEZING [None]
  - BRONCHITIS [None]
